FAERS Safety Report 17681625 (Version 7)
Quarter: 2022Q1

REPORT INFORMATION
  Report Type: Report from Study
  Country: CA (occurrence: CA)
  Receive Date: 20200417
  Receipt Date: 20220119
  Transmission Date: 20220424
  Serious: Yes (Hospitalization, Other)
  Sender: FDA-Public Use
  Company Number: PHHY2010CA69673

PATIENT
  Age: 65 Year
  Sex: Male

DRUGS (16)
  1. SANDOSTATIN LAR DEPOT [Suspect]
     Active Substance: OCTREOTIDE ACETATE
     Indication: Acromegaly
     Dosage: 20 MG, QMO (ONCE A MONTH)
     Route: 030
     Dates: start: 20100722
  2. SANDOSTATIN LAR DEPOT [Suspect]
     Active Substance: OCTREOTIDE ACETATE
     Dosage: 10 MG, QMO
     Route: 030
  3. SANDOSTATIN LAR DEPOT [Suspect]
     Active Substance: OCTREOTIDE ACETATE
     Dosage: 20 MG, QMO (ONCE A MONTH)
     Route: 030
     Dates: start: 201008
  4. SANDOSTATIN LAR DEPOT [Suspect]
     Active Substance: OCTREOTIDE ACETATE
     Dosage: 20 MG, QMO (ONCE A MONTH)
     Route: 030
  5. SANDOSTATIN LAR DEPOT [Suspect]
     Active Substance: OCTREOTIDE ACETATE
     Dosage: 20 MG, QMO (ONCE A MONTH)
     Route: 030
     Dates: start: 20190226
  6. SANDOSTATIN LAR DEPOT [Suspect]
     Active Substance: OCTREOTIDE ACETATE
     Dosage: 20 MG, QMO
     Route: 030
  7. METHOTREXATE [Suspect]
     Active Substance: METHOTREXATE
     Indication: Product used for unknown indication
     Dosage: UNK
     Route: 065
  8. RAMIPRIL [Suspect]
     Active Substance: RAMIPRIL
     Indication: Product used for unknown indication
     Dosage: UNK UNK, QD
     Route: 065
  9. GLUCOSAMINE [Concomitant]
     Active Substance: GLUCOSAMINE
     Indication: Product used for unknown indication
     Dosage: UNK
     Route: 065
  10. COSOPT [Concomitant]
     Active Substance: DORZOLAMIDE HYDROCHLORIDE\TIMOLOL MALEATE
     Indication: Product used for unknown indication
     Dosage: UNK
     Route: 065
  11. ASPIRIN [Concomitant]
     Active Substance: ASPIRIN
     Indication: Product used for unknown indication
     Dosage: UNK
     Route: 065
  12. LOSARTAN [Concomitant]
     Active Substance: LOSARTAN
     Indication: Product used for unknown indication
     Dosage: 100 OT, UNK
     Route: 065
  13. LOSARTAN [Concomitant]
     Active Substance: LOSARTAN
     Dosage: 12.5 OT, UNK
     Route: 065
  14. NEVANAC [Concomitant]
     Active Substance: NEPAFENAC
     Indication: Product used for unknown indication
     Dosage: UNK
     Route: 065
  15. PRED FORTE [Concomitant]
     Active Substance: PREDNISOLONE ACETATE
     Indication: Product used for unknown indication
     Dosage: UNK
     Route: 065
  16. SYNVISC [Concomitant]
     Active Substance: HYLAN G-F 20
     Indication: Osteoarthritis
     Dosage: UNK
     Route: 065
     Dates: start: 20190626

REACTIONS (22)
  - Cholelithiasis [Unknown]
  - Gallbladder enlargement [Unknown]
  - Abdominal distension [Unknown]
  - Abdominal pain [Recovered/Resolved]
  - Blood pressure increased [Unknown]
  - Blindness unilateral [Unknown]
  - Glaucoma [Not Recovered/Not Resolved]
  - Ocular hypertension [Recovering/Resolving]
  - Blood pressure decreased [Unknown]
  - Osteoarthritis [Unknown]
  - Concomitant disease progression [Unknown]
  - Articular disc disorder [Unknown]
  - Ocular hyperaemia [Unknown]
  - Blood pressure systolic increased [Unknown]
  - Body temperature decreased [Recovering/Resolving]
  - Blood growth hormone increased [Unknown]
  - Heart rate decreased [Unknown]
  - Muscular weakness [Unknown]
  - Groin pain [Recovering/Resolving]
  - Injection site pain [Unknown]
  - Oedema peripheral [Recovering/Resolving]
  - Rib fracture [Unknown]

NARRATIVE: CASE EVENT DATE: 20101017
